FAERS Safety Report 9854215 (Version 1)
Quarter: 2014Q1

REPORT INFORMATION
  Report Type: Report from Study
  Country: CN (occurrence: CN)
  Receive Date: 20140130
  Receipt Date: 20140130
  Transmission Date: 20141002
  Serious: Yes (Other)
  Sender: FDA-Public Use
  Company Number: CN-ROCHE-1337310

PATIENT
  Age: 47 Year
  Sex: Female

DRUGS (9)
  1. XELODA [Suspect]
     Indication: HER-2 POSITIVE BREAST CANCER
     Dosage: 3500 MG
     Route: 065
     Dates: start: 200807, end: 200908
  2. XELODA [Suspect]
     Route: 065
     Dates: start: 201105
  3. TRASTUZUMAB [Suspect]
     Indication: HER-2 POSITIVE BREAST CANCER
     Dosage: DAY 1
     Route: 065
     Dates: start: 200611
  4. TRASTUZUMAB [Suspect]
     Dosage: DAY 1
     Route: 065
     Dates: start: 201012, end: 201103
  5. TRASTUZUMAB [Suspect]
     Route: 065
     Dates: start: 201105
  6. TRASTUZUMAB [Suspect]
     Route: 065
     Dates: start: 201209
  7. DOCETAXEL [Concomitant]
     Indication: HER-2 POSITIVE BREAST CANCER
     Dosage: DAY 1
     Route: 065
     Dates: start: 201012, end: 201103
  8. DOCETAXEL [Concomitant]
     Route: 065
     Dates: start: 201209
  9. ETOPOSIDE [Concomitant]
     Indication: HER-2 POSITIVE BREAST CANCER
     Dosage: DAY 1-10 EVERY 21 DAYS
     Route: 048
     Dates: start: 20130417

REACTIONS (11)
  - Metastases to central nervous system [Recovering/Resolving]
  - Metastases to bone [Recovering/Resolving]
  - Metastases to lung [Recovering/Resolving]
  - Metastases to pleura [Recovering/Resolving]
  - Disease progression [Recovering/Resolving]
  - Metastases to lymph nodes [Recovering/Resolving]
  - Pleural effusion [Unknown]
  - Headache [Unknown]
  - Nausea [Unknown]
  - Vomiting [Unknown]
  - Palmar-plantar erythrodysaesthesia syndrome [Unknown]
